FAERS Safety Report 6553800-6 (Version None)
Quarter: 2010Q1

REPORT INFORMATION
  Report Type: 
  Country: None (occurrence: None)
  Receive Date: 20100125
  Receipt Date: 20100125
  Transmission Date: 20100710
  Serious: Yes (Life-Threatening)
  Sender: FDA-Public Use
  Company Number: None

PATIENT
  Age: 36 Year
  Sex: Female
  Weight: 81.6475 kg

DRUGS (4)
  1. REMICADE [Suspect]
     Indication: CROHN'S DISEASE
     Dosage: 12 MINUTES INTO TX IV
     Route: 042
     Dates: start: 20091222
  2. PREDNISONE [Concomitant]
  3. BENADRYL [Concomitant]
  4. TYLENOL (CAPLET) [Concomitant]

REACTIONS (12)
  - CYANOSIS [None]
  - DYSPNOEA [None]
  - EYE SWELLING [None]
  - FLUSHING [None]
  - HEADACHE [None]
  - HYPERHIDROSIS [None]
  - LIP SWELLING [None]
  - NAUSEA [None]
  - OEDEMA PERIPHERAL [None]
  - PALPITATIONS [None]
  - PHARYNGEAL OEDEMA [None]
  - SWELLING FACE [None]
